FAERS Safety Report 19444490 (Version 13)
Quarter: 2021Q4

REPORT INFORMATION
  Report Type: Report from Study
  Country: CO (occurrence: CO)
  Receive Date: 20210621
  Receipt Date: 20211108
  Transmission Date: 20220304
  Serious: Yes (Life-Threatening, Hospitalization, Disabling, Other)
  Sender: FDA-Public Use
  Company Number: CO-JNJFOC-20210620896

PATIENT
  Age: 59 Year
  Sex: Female
  Weight: 69 kg

DRUGS (9)
  1. IMBRUVICA [Suspect]
     Active Substance: IBRUTINIB
     Indication: Chronic lymphocytic leukaemia
     Route: 048
     Dates: start: 20190315, end: 20210829
  2. VALSARTAN [Concomitant]
     Active Substance: VALSARTAN
     Indication: Product used for unknown indication
  3. AMLODIPINE BESYLATE [Concomitant]
     Active Substance: AMLODIPINE BESYLATE
     Indication: Product used for unknown indication
  4. HYDROCHLOROTHIAZIDE [Concomitant]
     Active Substance: HYDROCHLOROTHIAZIDE
     Indication: Product used for unknown indication
  5. LEVOTHYROXINE [Concomitant]
     Active Substance: LEVOTHYROXINE
     Indication: Product used for unknown indication
  6. PANTOPRAZOLE [Concomitant]
     Active Substance: PANTOPRAZOLE
     Indication: Product used for unknown indication
  7. NOREPINEPHRINE [Concomitant]
     Active Substance: NOREPINEPHRINE
     Indication: Product used for unknown indication
  8. LANSOPRAZOLE [Concomitant]
     Active Substance: LANSOPRAZOLE
     Indication: Product used for unknown indication
  9. COVID-19 VACCINE [Concomitant]
     Indication: COVID-19 immunisation

REACTIONS (22)
  - Pneumothorax [Unknown]
  - Multiple organ dysfunction syndrome [Not Recovered/Not Resolved]
  - Gastrostomy [Recovered/Resolved with Sequelae]
  - Gastrectomy [Recovered/Resolved with Sequelae]
  - Tracheostomy [Recovered/Resolved with Sequelae]
  - Abdominal discomfort [Recovering/Resolving]
  - Pneumonia fungal [Not Recovered/Not Resolved]
  - Urinary tract infection [Not Recovered/Not Resolved]
  - Pneumonia klebsiella [Not Recovered/Not Resolved]
  - Oedema peripheral [Not Recovered/Not Resolved]
  - Pain in extremity [Recovered/Resolved with Sequelae]
  - COVID-19 [Recovered/Resolved with Sequelae]
  - Gait disturbance [Recovered/Resolved with Sequelae]
  - Chronic lymphocytic leukaemia [Not Recovered/Not Resolved]
  - Dizziness [Recovering/Resolving]
  - White blood cell count decreased [Unknown]
  - Contusion [Not Recovered/Not Resolved]
  - Platelet count decreased [Unknown]
  - Pain [Recovering/Resolving]
  - Alopecia [Recovered/Resolved with Sequelae]
  - Weight decreased [Recovering/Resolving]
  - Gastritis [Recovering/Resolving]

NARRATIVE: CASE EVENT DATE: 20210526
